FAERS Safety Report 4330133-X (Version None)
Quarter: 2004Q2

REPORT INFORMATION
  Report Type: 
  Country: None (occurrence: None)
  Receive Date: 20040402
  Receipt Date: 20040324
  Transmission Date: 20050107
  Serious: Yes (Death, Hospitalization)
  Sender: FDA-Public Use
  Company Number: 200411257FR

PATIENT
  Age: 74 Year
  Sex: Male
  Weight: 85 kg

DRUGS (2)
  1. DOCETAXEL [Suspect]
     Indication: CARCINOMA
     Dates: start: 20031222, end: 20040130
  2. RADIOTHERAPY [Suspect]
     Indication: CARCINOMA
     Dates: start: 20040220, end: 20040220

REACTIONS (10)
  - APHAGIA [None]
  - CACHEXIA [None]
  - CIRCULATORY COLLAPSE [None]
  - DEHYDRATION [None]
  - DEPRESSED LEVEL OF CONSCIOUSNESS [None]
  - GENERAL PHYSICAL HEALTH DETERIORATION [None]
  - HYPOVOLAEMIC SHOCK [None]
  - PSEUDOMONAS INFECTION [None]
  - RADIATION INJURY [None]
  - SEPTIC SHOCK [None]
